FAERS Safety Report 23897936 (Version 2)
Quarter: 2024Q3

REPORT INFORMATION
  Report Type: Spontaneous
  Country: US (occurrence: None)
  Receive Date: 20240524
  Receipt Date: 20240710
  Transmission Date: 20241016
  Serious: Yes (Other)
  Sender: ASTRAZENECA
  Company Number: 2024A116141

PATIENT

DRUGS (2)
  1. IMFINZI [Suspect]
     Active Substance: DURVALUMAB
     Route: 042
  2. IMJUDO [Suspect]
     Active Substance: TREMELIMUMAB\TREMELIMUMAB-ACTL
     Route: 042

REACTIONS (5)
  - Hepatic cancer stage IV [Unknown]
  - Cough [Unknown]
  - Sneezing [Unknown]
  - Rhinorrhoea [Unknown]
  - Illness [Unknown]
